FAERS Safety Report 17454041 (Version 2)
Quarter: 2020Q3

REPORT INFORMATION
  Report Type: Report from Study
  Country: US (occurrence: US)
  Receive Date: 20200224
  Receipt Date: 20200703
  Transmission Date: 20201102
  Serious: Yes (Death, Hospitalization, Other)
  Sender: FDA-Public Use
  Company Number: US-BAUSCH-BL-2020-005676

PATIENT
  Age: 51 Year
  Sex: Female
  Weight: 62.65 kg

DRUGS (3)
  1. ALBUTEROL SULFATE. [Suspect]
     Active Substance: ALBUTEROL SULFATE
     Indication: WHEEZING
     Dosage: 90 MCG PER ACTUATION, INHALE 2 PUFF EVERY 4 HOURS AS NEEDED
     Dates: start: 20151206
  2. XIFAXAN [Suspect]
     Active Substance: RIFAXIMIN
     Indication: HEPATIC ENCEPHALOPATHY
     Route: 048
     Dates: start: 20150724
  3. ALBUTEROL SULFATE. [Suspect]
     Active Substance: ALBUTEROL SULFATE
     Indication: DYSPNOEA

REACTIONS (7)
  - Hepatic cirrhosis [Unknown]
  - Ascites [Unknown]
  - Alcohol use disorder [Unknown]
  - Pancreatitis chronic [Unknown]
  - Dependence [Unknown]
  - Pneumoperitoneum [Recovered/Resolved]
  - Death [Fatal]

NARRATIVE: CASE EVENT DATE: 20190425
